FAERS Safety Report 7038538-3 (Version None)
Quarter: 2010Q4

REPORT INFORMATION
  Report Type: 
  Country: None (occurrence: None)
  Receive Date: 20101011
  Receipt Date: 20100720
  Transmission Date: 20110411
  Serious: Yes (Other)
  Sender: FDA-Public Use
  Company Number: US-PFIZER INC-2010090853

PATIENT
  Sex: Female
  Weight: 86.168 kg

DRUGS (21)
  1. NEURONTIN [Suspect]
     Indication: BONE PAIN
     Dosage: 300 MG, 1X/DAY
     Route: 048
     Dates: start: 20100718, end: 20100701
  2. NEURONTIN [Suspect]
     Indication: MUSCULOSKELETAL PAIN
  3. NEURONTIN [Suspect]
     Indication: NECK PAIN
  4. NEURONTIN [Suspect]
     Indication: PAIN IN EXTREMITY
  5. NEURONTIN [Suspect]
     Indication: NEURITIS
  6. DILANTIN [Concomitant]
     Indication: CONVULSION
     Dosage: 100 MG, 3X/DAY
     Route: 048
  7. SALBUTAMOL [Concomitant]
     Indication: ASTHMA
     Dosage: UNK
  8. SOLU-MEDROL [Concomitant]
     Indication: ASTHMA
     Dosage: 10 MG, 1X/DAY
  9. MONTELUKAST SODIUM [Concomitant]
     Indication: ASTHMA
     Dosage: 10 MG, 1X/DAY
     Route: 048
  10. XOPENEX [Concomitant]
     Indication: ASTHMA
     Dosage: 0.63 MG, 4X/DAY
  11. PROMETHAZINE [Concomitant]
     Indication: ASTHMA
     Dosage: 0.5 MG, 2X/DAY
     Route: 048
  12. CROMOLYN SODIUM [Concomitant]
     Indication: ASTHMA
     Dosage: UNK
  13. VERAPAMIL [Concomitant]
     Indication: CARDIAC DISORDER
     Dosage: 240 MG, 1X/DAY
     Route: 048
  14. CARDIZEM [Concomitant]
     Indication: CARDIAC DISORDER
     Dosage: 120 MG, 1X/DAY
     Route: 048
  15. IMURAN [Concomitant]
     Indication: NEUROMYOPATHY
     Dosage: 150 MG, 1X/DAY
     Route: 048
  16. LOVENOX [Concomitant]
     Indication: THROMBOSIS
     Dosage: 160 MG, UNK
  17. LASIX [Concomitant]
     Indication: HYPERTENSION
     Dosage: 80 MG, UNK
     Route: 048
  18. ALDACTONE [Concomitant]
     Indication: HYPERTENSION
     Dosage: 50 MG, 2X/DAY
     Route: 048
  19. NITROSTAT [Concomitant]
     Indication: ANGINA PECTORIS
     Dosage: UNK
  20. ISOSORBIDE DINITRATE [Concomitant]
     Indication: ANGINA PECTORIS
     Dosage: 2.5 MG, AS NEEDED
     Route: 048
  21. NITROGLYCERIN [Concomitant]
     Indication: ANGINA PECTORIS
     Dosage: UNK
     Route: 062

REACTIONS (2)
  - ASTHMA [None]
  - PAIN [None]
